FAERS Safety Report 7210810-3 (Version None)
Quarter: 2011Q1

REPORT INFORMATION
  Report Type: 
  Country: None (occurrence: None)
  Receive Date: 20110105
  Receipt Date: 20101228
  Transmission Date: 20110831
  Serious: Yes (Other)
  Sender: FDA-Public Use
  Company Number: DO-GILEAD-2010-0034233

PATIENT
  Sex: Male
  Weight: 59.928 kg

DRUGS (6)
  1. TRUVADA [Suspect]
     Indication: HIV INFECTION
     Route: 048
     Dates: start: 20101005, end: 20101203
  2. ATAZANAVIR [Suspect]
     Indication: HIV INFECTION
     Route: 048
     Dates: start: 20101005, end: 20101203
  3. GS-9350 [Suspect]
     Indication: HIV INFECTION
     Route: 048
     Dates: start: 20101005, end: 20101203
  4. RANITIDINE [Concomitant]
     Indication: HYPERCHLORHYDRIA
     Dates: start: 20101019
  5. MULTI-VITAMINS [Concomitant]
     Indication: SUPPLEMENTATION THERAPY
     Dates: start: 20100801
  6. ACETAMINOPHEN [Concomitant]
     Indication: HEADACHE
     Dates: start: 20100801

REACTIONS (1)
  - RHABDOMYOLYSIS [None]
